FAERS Safety Report 4780199-8 (Version None)
Quarter: 2005Q3

REPORT INFORMATION
  Report Type: 
  Country: None (occurrence: None)
  Receive Date: 20050914
  Receipt Date: 20040804
  Transmission Date: 20060218
  Serious: Yes (Hospitalization, Other)
  Sender: FDA-Public Use
  Company Number: 163-20785-04080138

PATIENT
  Age: 73 Year
  Sex: Male
  Weight: 68.2 kg

DRUGS (10)
  1. THALOMID [Suspect]
     Indication: PROSTATE CANCER METASTATIC
     Dosage: 300 MG, DAILY, ORAL
     Route: 048
     Dates: start: 20040713, end: 20040811
  2. DOCETAXEL (DOCETAXEL) (UNKNOWN) [Suspect]
     Indication: PROSTATE CANCER
     Dosage: 44 MG, WEEKLY, INTRAVENOUS
     Route: 042
     Dates: start: 20040720
  3. WARFARIN SODIUM [Concomitant]
  4. DECADRON [Concomitant]
  5. ZANTAC (RANITIDINE HYDROCHLORIDE) (UNKNOWN) [Concomitant]
  6. DULCOLAX [Concomitant]
  7. COMPAZINE (PROCHLORPERAZINE EDISYLATE) (UNKNOWN) [Concomitant]
  8. MILK OF MAGNESIA (MAGNESIUM HYDROXIDE) (UNKNOWN) [Concomitant]
  9. IMODIUM (LOPERAMIDE HYDROCHLORIDE) (UNKNOWN) [Concomitant]
  10. SYNTHROID [Concomitant]

REACTIONS (1)
  - BRADYCARDIA [None]
